FAERS Safety Report 24443224 (Version 2)
Quarter: 2024Q4

REPORT INFORMATION
  Report Type: Spontaneous
  Country: US (occurrence: US)
  Receive Date: 20241016
  Receipt Date: 20241104
  Transmission Date: 20250115
  Serious: Yes (Life-Threatening, Hospitalization)
  Sender: TEVA
  Company Number: US-TEVA-VS-3253741

PATIENT
  Age: 26 Year
  Sex: Male

DRUGS (2)
  1. TRANEXAMIC ACID [Suspect]
     Active Substance: TRANEXAMIC ACID
     Indication: Retroperitoneal haematoma
     Route: 065
  2. TROMETHAMINE [Suspect]
     Active Substance: TROMETHAMINE
     Indication: Metabolic acidosis
     Route: 065

REACTIONS (1)
  - Drug ineffective [Unknown]
